FAERS Safety Report 6891722-1 (Version None)
Quarter: 2010Q3

REPORT INFORMATION
  Report Type: 
  Country: None (occurrence: None)
  Receive Date: 20100731
  Receipt Date: 20071012
  Transmission Date: 20110219
  Serious: No
  Sender: FDA-Public Use
  Company Number: US-PFIZER INC-2007083158

PATIENT
  Sex: Female
  Weight: 89.5 kg

DRUGS (3)
  1. GABAPENTIN [Suspect]
     Indication: ARTHRALGIA
     Dates: start: 20070918
  2. TRAMADOL HYDROCHLORIDE [Suspect]
     Indication: ARTHRALGIA
     Dates: start: 20070716
  3. TYLENOL W/ CODEINE [Concomitant]
     Dates: start: 20070918

REACTIONS (2)
  - DRUG INEFFECTIVE [None]
  - NEUROPATHY PERIPHERAL [None]
